FAERS Safety Report 8454266-1 (Version None)
Quarter: 2012Q2

REPORT INFORMATION
  Report Type: 
  Country: None (occurrence: None)
  Receive Date: 20120620
  Receipt Date: 20120606
  Transmission Date: 20120825
  Serious: Yes (Other)
  Sender: FDA-Public Use
  Company Number: CHPA2012US012410

PATIENT
  Sex: Female

DRUGS (2)
  1. OCEAN NASAL SPRAY [Concomitant]
  2. PHENYLEPHRINE HCL [Suspect]
     Indication: NASAL CONGESTION
     Dosage: A COUPLE OF SPRAYS, QD
     Route: 045
     Dates: start: 19870101

REACTIONS (3)
  - BRONCHITIS [None]
  - INCORRECT DRUG ADMINISTRATION DURATION [None]
  - DEPENDENCE [None]
